FAERS Safety Report 9353743 (Version 1)
Quarter: 2013Q2

REPORT INFORMATION
  Report Type: Spontaneous
  Country: GB (occurrence: None)
  Receive Date: 20130612
  Receipt Date: 20130612
  Transmission Date: 20140414
  Serious: Yes (Other)
  Sender: FDA-Public Use
  Company Number: 2013-001845

PATIENT
  Sex: 0

DRUGS (1)
  1. ASACOL [Suspect]

REACTIONS (1)
  - Stevens-Johnson syndrome [None]
